FAERS Safety Report 20779551 (Version 1)
Quarter: 2022Q2

REPORT INFORMATION
  Report Type: Spontaneous
  Country: US (occurrence: US)
  Receive Date: 20220503
  Receipt Date: 20220503
  Transmission Date: 20220721
  Serious: No
  Sender: FDA-Public Use
  Company Number: US-ELI_LILLY_AND_COMPANY-US202106005822

PATIENT
  Sex: Female
  Weight: 87.982 kg

DRUGS (5)
  1. TADALAFIL [Suspect]
     Active Substance: TADALAFIL
     Indication: Product used for unknown indication
     Dosage: UNK UNK, UNKNOWN
     Route: 065
  2. ORENITRAM [Suspect]
     Active Substance: TREPROSTINIL
     Indication: Pulmonary arterial hypertension
     Dosage: 0.625 MG, TID
     Route: 048
     Dates: start: 20210514
  3. ORENITRAM [Suspect]
     Active Substance: TREPROSTINIL
     Dosage: 0.625 MG, TID
     Route: 048
     Dates: start: 20210514
  4. ORENITRAM [Suspect]
     Active Substance: TREPROSTINIL
     Dosage: UNK UNK, TID
     Route: 048
  5. AMBRISENTAN [Concomitant]
     Active Substance: AMBRISENTAN
     Indication: Product used for unknown indication

REACTIONS (4)
  - Sexual dysfunction [Unknown]
  - Diarrhoea [Unknown]
  - Headache [Unknown]
  - Flushing [Unknown]
